FAERS Safety Report 25897397 (Version 2)
Quarter: 2025Q4

REPORT INFORMATION
  Report Type: Spontaneous
  Country: US (occurrence: US)
  Receive Date: 20251008
  Receipt Date: 20251201
  Transmission Date: 20260117
  Serious: Yes (Other)
  Sender: PFIZER
  Company Number: US-PFIZER INC-PV202500119543

PATIENT
  Age: 33 Year
  Sex: Male

DRUGS (2)
  1. SOMAVERT [Suspect]
     Active Substance: PEGVISOMANT
     Indication: Acromegaly
     Dosage: UNK
     Dates: end: 202503
  2. SOMAVERT [Suspect]
     Active Substance: PEGVISOMANT
     Dosage: 30 MG, DAILY
     Route: 058
     Dates: start: 20250820

REACTIONS (1)
  - Pituitary tumour [Unknown]

NARRATIVE: CASE EVENT DATE: 20250301
